FAERS Safety Report 18391309 (Version 1)
Quarter: 2020Q4

REPORT INFORMATION
  Report Type: Spontaneous
  Country: FR (occurrence: FR)
  Receive Date: 20201016
  Receipt Date: 20201016
  Transmission Date: 20210114
  Serious: Yes (Hospitalization)
  Sender: FDA-Public Use
  Company Number: FR-ACCORD-205317

PATIENT
  Age: 55 Year
  Sex: Female
  Weight: 78 kg

DRUGS (4)
  1. GEMZAR [Suspect]
     Active Substance: GEMCITABINE HYDROCHLORIDE
     Indication: SMALL CELL LUNG CANCER METASTATIC
     Dosage: C1J1 LE 31/08
     Route: 042
     Dates: start: 20200831, end: 20200831
  2. ZARZIO [Suspect]
     Active Substance: FILGRASTIM
     Indication: SMALL CELL LUNG CANCER METASTATIC
     Route: 058
     Dates: start: 20200901, end: 20200903
  3. PACLITAXEL/PACLITAXEL LIPOSOME [Suspect]
     Active Substance: PACLITAXEL
     Indication: SMALL CELL LUNG CANCER METASTATIC
     Dosage: C1J1 ON 31/08
     Route: 042
     Dates: start: 20200831, end: 20200831
  4. MORPHINE [Concomitant]
     Active Substance: MORPHINE
     Indication: PAIN
     Dates: start: 20200907

REACTIONS (2)
  - Oedema peripheral [Recovered/Resolved]
  - Pancytopenia [Recovered/Resolved]

NARRATIVE: CASE EVENT DATE: 20200907
